FAERS Safety Report 14945310 (Version 1)
Quarter: 2018Q2

REPORT INFORMATION
  Report Type: Spontaneous
  Country: US (occurrence: US)
  Receive Date: 20180529
  Receipt Date: 20180529
  Transmission Date: 20180711
  Serious: Yes (Hospitalization)
  Sender: FDA-Public Use
  Company Number: US-BIODELIVERY SCIENCES INTERNATIONAL-2017BDSI0251

PATIENT
  Age: 58 Year
  Sex: Female
  Weight: 81.27 kg

DRUGS (1)
  1. BUPRENORPHINE. [Suspect]
     Active Substance: BUPRENORPHINE
     Indication: PAIN
     Route: 002
     Dates: start: 20171110, end: 201711

REACTIONS (6)
  - Stomatitis [Recovering/Resolving]
  - Insomnia [Recovered/Resolved]
  - Noninfective gingivitis [Recovering/Resolving]
  - Vomiting [Recovered/Resolved]
  - Mouth haemorrhage [Recovering/Resolving]
  - Oral pain [Recovering/Resolving]

NARRATIVE: CASE EVENT DATE: 201711
